FAERS Safety Report 23565072 (Version 1)
Quarter: 2024Q1

REPORT INFORMATION
  Report Type: Spontaneous
  Country: SE (occurrence: SE)
  Receive Date: 20240226
  Receipt Date: 20240226
  Transmission Date: 20240409
  Serious: Yes (Other)
  Sender: FDA-Public Use
  Company Number: SE-CHEPLA-2024002289

PATIENT
  Age: 43 Year
  Sex: Female

DRUGS (9)
  1. OLANZAPINE [Suspect]
     Active Substance: OLANZAPINE
     Dosage: FOR MORE THAN A YEAR,
  2. TRAMADOL [Suspect]
     Active Substance: TRAMADOL\TRAMADOL HYDROCHLORIDE
     Indication: Toothache
  3. HALOPERIDOL [Suspect]
     Active Substance: HALOPERIDOL
  4. ESCITALOPRAM [Suspect]
     Active Substance: ESCITALOPRAM OXALATE
  5. NICOTINAMIDE [Concomitant]
     Active Substance: NIACINAMIDE
  6. OXAZEPAM [Concomitant]
     Active Substance: OXAZEPAM
  7. PYRIDOXINE [Concomitant]
     Active Substance: PYRIDOXINE
  8. THIAMINE [Concomitant]
     Active Substance: THIAMINE
  9. ZOPICLONE [Concomitant]
     Active Substance: ZOPICLONE

REACTIONS (2)
  - Seizure [Unknown]
  - Hyponatraemia [Recovered/Resolved]
